APPROVED DRUG PRODUCT: MONISTAT 3
Active Ingredient: MICONAZOLE NITRATE
Strength: 4%
Dosage Form/Route: CREAM;VAGINAL
Application: N020827 | Product #001
Applicant: MEDTECH PRODUCTS INC
Approved: Mar 30, 1998 | RLD: Yes | RS: Yes | Type: OTC